FAERS Safety Report 21808914 (Version 1)
Quarter: 2023Q1

REPORT INFORMATION
  Report Type: Spontaneous
  Country: US (occurrence: US)
  Receive Date: 20230103
  Receipt Date: 20230103
  Transmission Date: 20230417
  Serious: Yes (Hospitalization)
  Sender: FDA-Public Use
  Company Number: None

PATIENT
  Sex: Male

DRUGS (1)
  1. BUPROPION HYDROCHLORIDE [Suspect]
     Active Substance: BUPROPION HYDROCHLORIDE
     Indication: Euphoric mood
     Route: 065

REACTIONS (4)
  - Hyponatraemia [Recovered/Resolved]
  - Substance-induced psychotic disorder [Unknown]
  - Intentional product misuse [Unknown]
  - Product use in unapproved indication [Unknown]
